FAERS Safety Report 24164276 (Version 2)
Quarter: 2024Q3

REPORT INFORMATION
  Report Type: Spontaneous
  Country: JP (occurrence: JP)
  Receive Date: 20240801
  Receipt Date: 20240809
  Transmission Date: 20241016
  Serious: Yes (Other)
  Sender: PFIZER
  Company Number: JP-ASTELLAS-2024JP004088

PATIENT

DRUGS (2)
  1. PADCEV [Suspect]
     Active Substance: ENFORTUMAB VEDOTIN-EJFV
     Dosage: UNK
     Route: 065
     Dates: start: 202404
  2. GEMCITABINE HYDROCHLORIDE [Suspect]
     Active Substance: GEMCITABINE HYDROCHLORIDE
     Dosage: UNK

REACTIONS (1)
  - Pneumonia aspiration [Not Recovered/Not Resolved]
